FAERS Safety Report 25297461 (Version 1)
Quarter: 2025Q2

REPORT INFORMATION
  Report Type: Spontaneous
  Country: US (occurrence: US)
  Receive Date: 20250511
  Receipt Date: 20250511
  Transmission Date: 20250716
  Serious: No
  Sender: TEVA
  Company Number: US-TEVA-VS-3327617

PATIENT
  Age: 72 Year
  Sex: Female

DRUGS (2)
  1. FAMOTIDINE [Suspect]
     Active Substance: FAMOTIDINE
     Indication: Oropharyngeal pain
     Dosage: ONCE DAILY BEFORE BED
     Route: 065
     Dates: start: 202501, end: 202504
  2. GABAPENTIN [Suspect]
     Active Substance: GABAPENTIN
     Indication: Neuralgia
     Route: 065

REACTIONS (10)
  - Arthritis [Recovering/Resolving]
  - Product dose omission in error [Unknown]
  - Drug ineffective [Unknown]
  - Blister [Recovering/Resolving]
  - Drug ineffective for unapproved indication [Unknown]
  - Pain [Unknown]
  - Pruritus [Recovering/Resolving]
  - Gait inability [Recovering/Resolving]
  - Bone pain [Recovering/Resolving]
  - Myalgia [Recovering/Resolving]

NARRATIVE: CASE EVENT DATE: 20250101
